FAERS Safety Report 20394559 (Version 1)
Quarter: 2022Q1

REPORT INFORMATION
  Report Type: Spontaneous
  Country: BO (occurrence: BO)
  Receive Date: 20220129
  Receipt Date: 20220129
  Transmission Date: 20220423
  Serious: Yes (Death)
  Sender: FDA-Public Use
  Company Number: BO-NOVARTISPH-NVSC2022BO018976

PATIENT
  Sex: Female

DRUGS (1)
  1. TASIGNA [Suspect]
     Active Substance: NILOTINIB
     Indication: Chronic myeloid leukaemia
     Dosage: 400 MG, BID
     Route: 065

REACTIONS (1)
  - Death [Fatal]
